FAERS Safety Report 20868303 (Version 1)
Quarter: 2022Q2

REPORT INFORMATION
  Report Type: Spontaneous
  Country: US (occurrence: US)
  Receive Date: 20220524
  Receipt Date: 20220524
  Transmission Date: 20220721
  Serious: No
  Sender: FDA-Public Use
  Company Number: US-ELI_LILLY_AND_COMPANY-US202205009330

PATIENT
  Sex: Female

DRUGS (1)
  1. TRULICITY [Suspect]
     Active Substance: DULAGLUTIDE
     Indication: Weight decreased
     Dosage: 0.75 MG, UNKNOWN
     Route: 058

REACTIONS (8)
  - Gastrointestinal sounds abnormal [Recovered/Resolved]
  - Illness [Recovered/Resolved]
  - Epigastric discomfort [Unknown]
  - Vomiting [Recovered/Resolved]
  - Abdominal pain [Unknown]
  - Decreased appetite [Unknown]
  - Nausea [Recovered/Resolved]
  - Off label use [Unknown]
